FAERS Safety Report 10214642 (Version 2)
Quarter: 2014Q2

REPORT INFORMATION
  Report Type: Report from Study
  Country: CA (occurrence: CA)
  Receive Date: 20140603
  Receipt Date: 20140623
  Transmission Date: 20141212
  Serious: Yes (Hospitalization, Other)
  Sender: FDA-Public Use
  Company Number: CA-BRISTOL-MYERS SQUIBB COMPANY-20835872

PATIENT
  Age: 67 Year
  Sex: Female

DRUGS (18)
  1. ORENCIA [Suspect]
     Indication: RHEUMATOID ARTHRITIS
     Dosage: LAST DOSE OF ORENCIA WAS 23-APR-2D14
     Route: 042
     Dates: start: 20100921
  2. ACETAMINOPHEN [Concomitant]
  3. SALBUTAMOL [Concomitant]
  4. ACTONEL [Concomitant]
  5. CRESTOR [Concomitant]
  6. CALCIUM [Concomitant]
  7. VITAMIN D [Concomitant]
  8. ENALAPRIL [Concomitant]
  9. ATIVAN [Concomitant]
  10. OMEPRAZOLE [Concomitant]
  11. SYNTHROID [Concomitant]
  12. ASPIRIN [Concomitant]
  13. PREDNISONE [Concomitant]
  14. HYDROXYCHLOROQUINE [Concomitant]
  15. AMLODIPINE [Concomitant]
  16. HYDROCHLOROTHIAZIDE [Concomitant]
  17. TENORMIN [Concomitant]
  18. VASOTEC [Concomitant]

REACTIONS (6)
  - Chest pain [Unknown]
  - Pulmonary oedema [Unknown]
  - Cerebrovascular accident [Unknown]
  - Fatigue [Unknown]
  - Gait disturbance [Unknown]
  - Asthenia [Unknown]
